FAERS Safety Report 15473640 (Version 1)
Quarter: 2018Q4

REPORT INFORMATION
  Report Type: Spontaneous
  Country: US (occurrence: US)
  Receive Date: 20181008
  Receipt Date: 20181008
  Transmission Date: 20190205
  Serious: No
  Sender: FDA-Public Use
  Company Number: US-JNJFOC-20180909092

PATIENT
  Age: 28 Year
  Sex: Female
  Weight: 70.31 kg

DRUGS (1)
  1. STELARA [Suspect]
     Active Substance: USTEKINUMAB
     Indication: PSORIASIS
     Dosage: EVERY 2 TO 3 MONTHS
     Route: 058
     Dates: start: 201803

REACTIONS (4)
  - Psoriasis [Unknown]
  - Off label use [Unknown]
  - Inappropriate schedule of product administration [Unknown]
  - Product dose omission [Unknown]

NARRATIVE: CASE EVENT DATE: 201803
